FAERS Safety Report 8275648-7 (Version None)
Quarter: 2012Q2

REPORT INFORMATION
  Report Type: 
  Country: None (occurrence: None)
  Receive Date: 20120412
  Receipt Date: 20120403
  Transmission Date: 20120825
  Serious: No
  Sender: FDA-Public Use
  Company Number: US-BIOGENIDEC-2012BI011873

PATIENT
  Sex: Female

DRUGS (2)
  1. TYSABRI [Suspect]
     Route: 042
     Dates: start: 20110803
  2. TYSABRI [Suspect]
     Indication: MULTIPLE SCLEROSIS
     Route: 042
     Dates: start: 20100527, end: 20101109

REACTIONS (6)
  - THINKING ABNORMAL [None]
  - SOMNOLENCE [None]
  - FATIGUE [None]
  - COGNITIVE DISORDER [None]
  - AGGRESSION [None]
  - URINARY TRACT INFECTION [None]
